FAERS Safety Report 20083613 (Version 1)
Quarter: 2021Q4

REPORT INFORMATION
  Report Type: Spontaneous
  Country: FR (occurrence: FR)
  Receive Date: 20211118
  Receipt Date: 20211118
  Transmission Date: 20220303
  Serious: Yes (Hospitalization)
  Sender: FDA-Public Use
  Company Number: FR-ACTAVIS-2005-03532

PATIENT
  Age: 15 Year
  Sex: Female

DRUGS (4)
  1. IBUPROFEN [Interacting]
     Active Substance: IBUPROFEN
     Indication: Product used for unknown indication
     Dosage: 600 MILLIGRAM (TOTAL PER DAY)
     Route: 048
     Dates: start: 2005
  2. IBUPROFEN\PSEUDOEPHEDRINE HYDROCHLORIDE [Interacting]
     Active Substance: IBUPROFEN\PSEUDOEPHEDRINE HYDROCHLORIDE
     Indication: Product used for unknown indication
     Dosage: 90 MILLIGRAM (TOTAL PER DAY)
     Route: 048
     Dates: start: 2005
  3. Respilene [Concomitant]
     Indication: Product used for unknown indication
     Dosage: 9 MILLIGRAM (TOTAL PER DAY)
     Route: 048
     Dates: start: 2005, end: 2005
  4. DAFALGAN [Concomitant]
     Active Substance: ACETAMINOPHEN
     Indication: Product used for unknown indication
     Dosage: 500 MILLIGRAM, 3 TIMES A DAY
     Route: 048
     Dates: start: 2005, end: 2005

REACTIONS (6)
  - Colitis ischaemic [Recovered/Resolved]
  - Potentiating drug interaction [Recovered/Resolved]
  - Abdominal pain [Recovered/Resolved]
  - Diarrhoea [Recovered/Resolved]
  - Pyrexia [Recovered/Resolved]
  - Vomiting [Recovered/Resolved]

NARRATIVE: CASE EVENT DATE: 20050101
